FAERS Safety Report 4520059-0 (Version None)
Quarter: 2004Q4

REPORT INFORMATION
  Report Type: 
  Country: None (occurrence: None)
  Receive Date: 20041207
  Receipt Date: 20041129
  Transmission Date: 20050328
  Serious: Yes (Hospitalization)
  Sender: FDA-Public Use
  Company Number: PHRM2004FR03503

PATIENT
  Age: 87 Year
  Sex: Female

DRUGS (12)
  1. TRINIPATCH [Concomitant]
     Dosage: 10 MG/24HRS
     Route: 062
  2. HUMULINE NPH [Concomitant]
  3. LAMISIL [Suspect]
     Dosage: 250 MG, QD
     Route: 048
     Dates: start: 20041102, end: 20041104
  4. LAMISIL [Suspect]
     Route: 048
     Dates: start: 19960101
  5. EUPRESSYL [Concomitant]
     Dosage: 30 MG, QD
     Route: 048
  6. ZESTRIL [Concomitant]
     Dosage: 20 MG, QD
     Route: 048
     Dates: end: 20041105
  7. ESIDRIX [Concomitant]
     Dosage: 25 MG, QD
     Route: 048
     Dates: end: 20041105
  8. KARDEGIC                                /FRA/ [Concomitant]
     Dosage: 75 MG, QD
  9. DIFFU K [Concomitant]
     Dosage: 1 DF, QD
     Route: 048
  10. OSTRAM [Concomitant]
     Dosage: 1 DF, BID
  11. OSTRAM [Concomitant]
     Dosage: 1 DF, BID
  12. AMLOR [Concomitant]
     Dosage: 5 MG, BID

REACTIONS (6)
  - ACUTE GENERALISED EXANTHEMATOUS PUSTULOSIS [None]
  - DEHYDRATION [None]
  - DERMATITIS EXFOLIATIVE [None]
  - RASH PUSTULAR [None]
  - RENAL FAILURE ACUTE [None]
  - TOXIC SKIN ERUPTION [None]
